FAERS Safety Report 9896392 (Version 1)
Quarter: 2014Q1

REPORT INFORMATION
  Report Type: Spontaneous
  Country: US (occurrence: US)
  Receive Date: 20140213
  Receipt Date: 20140213
  Transmission Date: 20141002
  Serious: No
  Sender: FDA-Public Use
  Company Number: US-BRISTOL-MYERS SQUIBB COMPANY-19806264

PATIENT
  Age: 11 Year
  Sex: Female

DRUGS (1)
  1. ORENCIA [Suspect]
     Indication: JUVENILE IDIOPATHIC ARTHRITIS
     Dosage: 1DF: 1 SHOT,1ML
     Dates: start: 2012

REACTIONS (3)
  - Malaise [Unknown]
  - Rash [Unknown]
  - Pyrexia [Unknown]
